FAERS Safety Report 17417412 (Version 1)
Quarter: 2020Q1

REPORT INFORMATION
  Report Type: Spontaneous
  Country: NL (occurrence: NL)
  Receive Date: 20200214
  Receipt Date: 20200214
  Transmission Date: 20200409
  Serious: Yes (Other)
  Sender: FDA-Public Use
  Company Number: NL-MYLANLABS-2020M1016207

PATIENT
  Age: 39 Year
  Sex: Female

DRUGS (1)
  1. ETHINYLESTRADIOL/LEVONORGESTREL [Suspect]
     Active Substance: ETHINYL ESTRADIOL\LEVONORGESTREL
     Indication: PRODUCT USED FOR UNKNOWN INDICATION
     Dosage: UNK
     Route: 065
     Dates: end: 2016

REACTIONS (5)
  - Suicidal ideation [Recovered/Resolved]
  - Product substitution issue [Unknown]
  - Irritability [Recovered/Resolved]
  - Patient dissatisfaction with treatment [Unknown]
  - Depression [Recovered/Resolved]
